FAERS Safety Report 4691272-7 (Version None)
Quarter: 2005Q2

REPORT INFORMATION
  Report Type: 
  Country: None (occurrence: None)
  Receive Date: 20050610
  Receipt Date: 20050531
  Transmission Date: 20051028
  Serious: Yes (Hospitalization, Other)
  Sender: FDA-Public Use
  Company Number: HQWYE060001JUN05

PATIENT
  Age: 55 Year
  Sex: Female

DRUGS (2)
  1. PREMARIN [Suspect]
     Indication: HYSTERECTOMY
     Dosage: ORAL
     Route: 048
     Dates: start: 19920101
  2. AQUAFRESH TOOTHPASTE (SODIUM MONOFLUOROPHOSPHATE, ) [Suspect]
     Indication: DENTAL CLEANING
     Dosage: DENTAL
     Route: 004
     Dates: start: 20050220, end: 20050501

REACTIONS (2)
  - OVARIAN CANCER [None]
  - VAGINAL CANCER [None]
